FAERS Safety Report 6448364-1 (Version None)
Quarter: 2009Q4

REPORT INFORMATION
  Report Type: 
  Country: None (occurrence: None)
  Receive Date: 20091120
  Receipt Date: 20091106
  Transmission Date: 20100525
  Serious: Yes (Hospitalization, Other)
  Sender: FDA-Public Use
  Company Number: PHHY2009DE48765

PATIENT
  Age: 71 Year
  Sex: Male

DRUGS (5)
  1. EXJADE [Suspect]
     Indication: MYELODYSPLASTIC SYNDROME
     Dosage: UNK
     Route: 048
  2. EXJADE [Suspect]
     Indication: HAEMOSIDEROSIS
  3. VOLTAREN [Suspect]
     Indication: GOUT
     Dosage: UNK
  4. FUROSEMIDE [Concomitant]
  5. RAMIPRIL [Concomitant]

REACTIONS (2)
  - GOUT [None]
  - RENAL FAILURE ACUTE [None]
